FAERS Safety Report 8069260-2 (Version None)
Quarter: 2012Q1

REPORT INFORMATION
  Report Type: 
  Country: None (occurrence: None)
  Receive Date: 20120125
  Receipt Date: 20120117
  Transmission Date: 20120608
  Serious: Yes (Life-Threatening, Hospitalization)
  Sender: FDA-Public Use
  Company Number: MA-JNJFOC-20120105672

PATIENT
  Age: 65 Year
  Sex: Female
  Weight: 56 kg

DRUGS (3)
  1. REMICADE [Suspect]
     Indication: CROHN'S DISEASE
     Dosage: 3 DOSES (VIALS)
     Route: 042
  2. ANTI HYPERTENSIVE DRUG (NOS) [Concomitant]
     Indication: HYPERTENSION
  3. REMICADE [Suspect]
     Dosage: NINTH INFUSION
     Route: 042
     Dates: start: 20110926

REACTIONS (4)
  - GASTROINTESTINAL HAEMORRHAGE [None]
  - PURPURA [None]
  - HAEMATURIA [None]
  - THROMBOCYTOPENIA [None]
